FAERS Safety Report 24697602 (Version 1)
Quarter: 2024Q4

REPORT INFORMATION
  Report Type: Spontaneous
  Country: NL (occurrence: NL)
  Receive Date: 20241204
  Receipt Date: 20241204
  Transmission Date: 20250115
  Serious: Yes (Hospitalization)
  Sender: MYLAN
  Company Number: None

PATIENT
  Age: 83 Year
  Sex: Male
  Weight: 65 kg

DRUGS (7)
  1. FUROSEMIDE [Suspect]
     Active Substance: FUROSEMIDE
     Indication: Hypertension
     Dosage: 40 MILLIGRAM, QD (1DD 1 PIECE)
     Route: 048
     Dates: start: 20240527, end: 20241028
  2. BARNIDIPINE [Concomitant]
     Active Substance: BARNIDIPINE
     Dosage: 10 MILLIGRAM (REGULATED RELEASE CAPSULE)
     Route: 048
  3. MOXONIDINE [Concomitant]
     Active Substance: MOXONIDINE
     Dosage: 0.25 MILLIGRAM
     Route: 048
  4. DOXAZOSIN MESYLATE [Concomitant]
     Active Substance: DOXAZOSIN MESYLATE
     Dosage: 8 MILLIGRAM (REGULATED-RELEASE TABLET)
     Route: 048
  5. DAPAGLIFLOZIN [Concomitant]
     Active Substance: DAPAGLIFLOZIN
     Dosage: 5 MILLIGRAM (TABLET)
     Route: 048
  6. SPIRONOLACTONE [Concomitant]
     Active Substance: SPIRONOLACTONE
     Dosage: 50 MILLIGRAM (2DD 50MG TABLET)
     Route: 065
  7. METOPROLOL [Concomitant]
     Active Substance: METOPROLOL
     Dosage: TABLET, 50 MG (MILLIGRAM)
     Route: 048

REACTIONS (1)
  - Hypokalaemia [Recovering/Resolving]
